FAERS Safety Report 18251360 (Version 1)
Quarter: 2020Q3

REPORT INFORMATION
  Report Type: Spontaneous
  Country: RO (occurrence: RO)
  Receive Date: 20200910
  Receipt Date: 20200910
  Transmission Date: 20201103
  Serious: Yes (Hospitalization, Other)
  Sender: FDA-Public Use
  Company Number: RO-SUN PHARMACEUTICAL INDUSTRIES LTD-2019R1-221021

PATIENT
  Age: 42 Year
  Sex: Male

DRUGS (8)
  1. DASABUVIR [Suspect]
     Active Substance: DASABUVIR
     Indication: ANTIVIRAL TREATMENT
     Dosage: UNK
     Route: 065
  2. PREDNISONE. [Suspect]
     Active Substance: PREDNISONE
     Indication: IMMUNOSUPPRESSION
     Dosage: 5 MILLIGRAM, DAILY
     Route: 065
  3. PARITAPREVIR [Suspect]
     Active Substance: PARITAPREVIR
     Indication: ANTIVIRAL TREATMENT
     Dosage: UNK
     Route: 065
  4. MYCOPHENOLATE [Suspect]
     Active Substance: MYCOPHENOLIC ACID
     Indication: IMMUNOSUPPRESSION
     Dosage: 1 MILLIGRAM, DAILY
     Route: 065
  5. RITONAVIR. [Suspect]
     Active Substance: RITONAVIR
     Indication: ANTIVIRAL TREATMENT
     Dosage: UNK
     Route: 065
  6. OMBITASVIR [Suspect]
     Active Substance: OMBITASVIR
     Indication: ANTIVIRAL TREATMENT
     Dosage: UNK
     Route: 065
  7. TACROLIMUS. [Suspect]
     Active Substance: TACROLIMUS
     Indication: CHRONIC HEPATITIS C
     Dosage: 2 MILLIGRAM, DAILY
     Route: 065
  8. TACROLIMUS. [Suspect]
     Active Substance: TACROLIMUS
     Indication: IMMUNOSUPPRESSION
     Dosage: 2 MILLIGRAM, WEEKLY
     Route: 065

REACTIONS (4)
  - Accidental overdose [Unknown]
  - Hyperglycaemia [Recovered/Resolved]
  - Electrocardiogram T wave abnormal [Unknown]
  - Immunosuppressant drug level increased [Recovered/Resolved]
